FAERS Safety Report 23901224 (Version 1)
Quarter: 2024Q2

REPORT INFORMATION
  Report Type: Spontaneous
  Country: US (occurrence: None)
  Receive Date: 20240526
  Receipt Date: 20240526
  Transmission Date: 20240715
  Serious: No
  Sender: FDA-Public Use
  Company Number: US-ROCHE-3513549

PATIENT
  Age: 55 Year
  Sex: Female

DRUGS (1)
  1. OCREVUS [Suspect]
     Active Substance: OCRELIZUMAB
     Indication: Multiple sclerosis
     Dosage: HER INFUSION WAS IN /JUN/2023 AND THE NEXT INFUSION WAS IN /DEC/2023
     Route: 065
     Dates: start: 202306

REACTIONS (1)
  - Large intestine infection [Unknown]
